FAERS Safety Report 6059459-9 (Version None)
Quarter: 2009Q1

REPORT INFORMATION
  Report Type: 
  Country: None (occurrence: None)
  Receive Date: 20090130
  Receipt Date: 20090122
  Transmission Date: 20090719
  Serious: Yes (Other)
  Sender: FDA-Public Use
  Company Number: US-JNJCH-2009002464

PATIENT
  Sex: Female
  Weight: 78.9 kg

DRUGS (2)
  1. ASPIRIN [Suspect]
     Indication: OSTEOARTHRITIS
     Dosage: TEXT:UNSPECIFIED
     Route: 048
  2. NSAID'S [Suspect]
     Indication: OSTEOARTHRITIS
     Dosage: TEXT:UNSPECIFIED
     Route: 048

REACTIONS (3)
  - DRUG INTOLERANCE [None]
  - NERVOUS SYSTEM DISORDER [None]
  - WHEELCHAIR USER [None]
